FAERS Safety Report 6529731-4 (Version None)
Quarter: 2010Q1

REPORT INFORMATION
  Report Type: 
  Country: None (occurrence: None)
  Receive Date: 20100107
  Receipt Date: 20100101
  Transmission Date: 20100710
  Serious: Yes (Hospitalization)
  Sender: FDA-Public Use
  Company Number: A0837929A

PATIENT
  Age: 62 Year
  Sex: Female

DRUGS (1)
  1. ALLI [Suspect]
     Indication: DRUG USE FOR UNKNOWN INDICATION
     Route: 048

REACTIONS (3)
  - ABDOMINAL PAIN [None]
  - DIARRHOEA [None]
  - MALAISE [None]
